FAERS Safety Report 8789475 (Version 1)
Quarter: 2012Q4

REPORT INFORMATION
  Report Type: Spontaneous
  Country: US (occurrence: None)
  Receive Date: 20120910
  Receipt Date: 20120910
  Transmission Date: 20130627
  Serious: Yes (Other)
  Sender: FDA-Public Use
  Company Number: None

PATIENT
  Age: 57 Year
  Sex: Male
  Weight: 77.11 kg

DRUGS (1)
  1. MIRAPEX [Suspect]
     Indication: CHRONIC FATIGUE

REACTIONS (7)
  - Impulse-control disorder [None]
  - Marital problem [None]
  - Economic problem [None]
  - Insomnia [None]
  - Personality change [None]
  - Anger [None]
  - Dependence [None]
